FAERS Safety Report 8305159-1 (Version None)
Quarter: 2012Q2

REPORT INFORMATION
  Report Type: 
  Country: None (occurrence: None)
  Receive Date: 20120418
  Receipt Date: 20120409
  Transmission Date: 20120825
  Serious: Yes (Hospitalization, Other)
  Sender: FDA-Public Use
  Company Number: DAV-AE-MTX-12-24

PATIENT
  Age: 52 Year
  Sex: Female
  Weight: 57 kg

DRUGS (5)
  1. JUVELA NICOTINATE(TOCOPHERYL NICOTINATE) [Concomitant]
  2. RHEUMATREX [Suspect]
     Indication: RHEUMATOID ARTHRITIS
     Dosage: 16MG/WEEKLY, ORAL
     Route: 048
  3. LIVALO [Concomitant]
  4. ENBREL [Suspect]
     Indication: RHEUMATOID ARTHRITIS
     Dosage: 25MG, 2X/WK, SUBCUTAENOUS
     Route: 058
     Dates: start: 20060525, end: 20111020
  5. INDOMETHACIN [Concomitant]

REACTIONS (2)
  - OVARIAN CANCER [None]
  - METASTASES TO LUNG [None]
